FAERS Safety Report 9944555 (Version 1)
Quarter: 2014Q1

REPORT INFORMATION
  Report Type: Report from Study
  Country: US (occurrence: US)
  Receive Date: 20140303
  Receipt Date: 20140303
  Transmission Date: 20141002
  Serious: No
  Sender: FDA-Public Use
  Company Number: US-ABBVIE-13P-163-1054336-00

PATIENT
  Age: 18 Year
  Sex: Male

DRUGS (4)
  1. HUMIRA [Suspect]
     Indication: RHEUMATOID ARTHRITIS
     Dates: start: 200202, end: 201210
  2. HUMIRA [Suspect]
  3. HUMIRA [Suspect]
  4. VICODIN [Concomitant]
     Indication: PAIN

REACTIONS (1)
  - Uveitis [Not Recovered/Not Resolved]
